FAERS Safety Report 5075166-3 (Version None)
Quarter: 2006Q3

REPORT INFORMATION
  Report Type: 
  Country: None (occurrence: None)
  Receive Date: 20060804
  Receipt Date: 20060801
  Transmission Date: 20061208
  Serious: Yes (Other)
  Sender: FDA-Public Use
  Company Number: 200613594BWH

PATIENT
  Sex: Female

DRUGS (1)
  1. AVELOX [Suspect]
     Dosage: ORAL
     Route: 048

REACTIONS (2)
  - ELECTROCARDIOGRAM QT CORRECTED INTERVAL PROLONGED [None]
  - HEART RATE DECREASED [None]
